FAERS Safety Report 6712534-5 (Version None)
Quarter: 2010Q2

REPORT INFORMATION
  Report Type: 
  Country: None (occurrence: None)
  Receive Date: 20100505
  Receipt Date: 20100505
  Transmission Date: 20101027
  Serious: Yes (Other)
  Sender: FDA-Public Use
  Company Number: None

PATIENT
  Age: 70 Year
  Sex: Male
  Weight: 86.1834 kg

DRUGS (2)
  1. EQUATE HAIR REGROWTH TREATMENT MINOXIDIL TOPICAL SOLUTION 5% [Suspect]
     Dosage: 1 EYEDROPPER 2 TIMES A DAY HEAD
     Route: 061
  2. . [Concomitant]

REACTIONS (4)
  - DIZZINESS [None]
  - DYSSTASIA [None]
  - MALAISE [None]
  - VOMITING [None]
